FAERS Safety Report 21367026 (Version 1)
Quarter: 2022Q3

REPORT INFORMATION
  Report Type: Spontaneous
  Country: US (occurrence: US)
  Receive Date: 20220923
  Receipt Date: 20220923
  Transmission Date: 20221026
  Serious: No
  Sender: FDA-Public Use
  Company Number: US-SA-SAC20220914001250

PATIENT
  Age: 92 Year
  Sex: Female

DRUGS (1)
  1. DUPIXENT [Suspect]
     Active Substance: DUPILUMAB
     Indication: Dermatitis atopic
     Dosage: 300 MG, QOW
     Route: 058

REACTIONS (4)
  - Drug hypersensitivity [Recovering/Resolving]
  - Lip swelling [Recovering/Resolving]
  - Lip discolouration [Recovering/Resolving]
  - Artificial crown procedure [Unknown]

NARRATIVE: CASE EVENT DATE: 20220912
